FAERS Safety Report 6595709-8 (Version None)
Quarter: 2010Q1

REPORT INFORMATION
  Report Type: 
  Country: None (occurrence: None)
  Receive Date: 20100222
  Receipt Date: 20100222
  Transmission Date: 20100710
  Serious: No
  Sender: FDA-Public Use
  Company Number: None

PATIENT
  Age: 73 Year
  Sex: Male
  Weight: 90.7194 kg

DRUGS (4)
  1. BENYLIN [Suspect]
     Indication: OROPHARYNGEAL PAIN
     Dates: start: 20100114, end: 20100116
  2. CORTEF [Suspect]
     Indication: OROPHARYNGEAL PAIN
     Dates: start: 20100114, end: 20100116
  3. NYSTATIN [Suspect]
     Indication: OROPHARYNGEAL PAIN
     Dates: start: 20100114, end: 20100116
  4. TETRACYCLINE [Suspect]
     Indication: OROPHARYNGEAL PAIN
     Dates: start: 20100114, end: 20100116

REACTIONS (1)
  - OESOPHAGEAL HAEMORRHAGE [None]
